FAERS Safety Report 6994067-4 (Version None)
Quarter: 2010Q3

REPORT INFORMATION
  Report Type: 
  Country: None (occurrence: None)
  Receive Date: 20100917
  Receipt Date: 20100331
  Transmission Date: 20110219
  Serious: Yes (Other)
  Sender: FDA-Public Use
  Company Number: US-ASTRAZENECA-2010SE15519

PATIENT
  Age: 17460 Day
  Sex: Male
  Weight: 118.9 kg

DRUGS (4)
  1. SEROQUEL [Suspect]
     Dosage: 300 MG - 600MG
     Route: 048
     Dates: start: 20080313
  2. TRAZODONE HCL [Concomitant]
     Dates: start: 20080313
  3. MIRTAZAPINE [Concomitant]
  4. SYMBYAX [Concomitant]
     Dosage: 12MG-50MG

REACTIONS (1)
  - DIABETES MELLITUS INADEQUATE CONTROL [None]
